FAERS Safety Report 8652603 (Version 2)
Quarter: 2012Q4

REPORT INFORMATION
  Report Type: 
  Country: FR (occurrence: FR)
  Receive Date: 20120706
  Receipt Date: 20120927
  Transmission Date: 20130627
  Serious: Yes (Other)
  Sender: FDA-Public Use
  Company Number: FR-ELI_LILLY_AND_COMPANY-FR201206008608

PATIENT
  Age: 72 Year
  Sex: Female

DRUGS (5)
  1. CYMBALTA [Suspect]
     Indication: DEPRESSION
     Dosage: 30 mg, qd
     Route: 048
     Dates: start: 201111, end: 201206
  2. SERESTA [Concomitant]
     Indication: INSOMNIA
     Dosage: 50 mg, qd
     Dates: start: 201111
  3. TEMESTA [Concomitant]
     Dosage: UNK UNK
     Dates: start: 201111
  4. PRAZEPAM [Concomitant]
     Indication: ANXIETY
     Dosage: 30 mg, qd
     Dates: start: 201111
  5. MIRTAZAPINE [Concomitant]
     Indication: DEPRESSION
     Dosage: 30 mg, qd
     Dates: start: 201111

REACTIONS (9)
  - Gamma-glutamyltransferase increased [Recovering/Resolving]
  - Asthenia [Recovering/Resolving]
  - Nausea [Recovering/Resolving]
  - Vomiting [Recovering/Resolving]
  - Decreased appetite [Recovering/Resolving]
  - Abdominal pain [Recovering/Resolving]
  - Alanine aminotransferase increased [Recovering/Resolving]
  - Aspartate aminotransferase increased [Recovering/Resolving]
  - Blood alkaline phosphatase increased [Recovering/Resolving]
